FAERS Safety Report 17192636 (Version 1)
Quarter: 2019Q4

REPORT INFORMATION
  Report Type: Spontaneous
  Country: US (occurrence: US)
  Receive Date: 20191223
  Receipt Date: 20191223
  Transmission Date: 20200122
  Serious: No
  Sender: FDA-Public Use
  Company Number: US-ASTRAZENECA-2019SF80895

PATIENT
  Sex: Male

DRUGS (1)
  1. ZOMIG [Suspect]
     Active Substance: ZOLMITRIPTAN
     Dosage: 5 MG, USE 1 SPRAY IN 1 NOSTRIL AT ONSET OF MIGRAINE. MAY REPEAT IN 2 HOURS IF NEEDED. (DO NOT EXC...
     Route: 045

REACTIONS (2)
  - Weight increased [Unknown]
  - Product dose omission [Unknown]
